FAERS Safety Report 19904913 (Version 2)
Quarter: 2021Q4

REPORT INFORMATION
  Report Type: Spontaneous
  Country: JP (occurrence: JP)
  Receive Date: 20211001
  Receipt Date: 20211012
  Transmission Date: 20220303
  Serious: Yes (Hospitalization, Other)
  Sender: FDA-Public Use
  Company Number: JP-GLAXOSMITHKLINE-JP2021JPN203167

PATIENT
  Age: 87 Year
  Sex: Female

DRUGS (2)
  1. VALTREX [Suspect]
     Active Substance: VALACYCLOVIR HYDROCHLORIDE
     Indication: Herpes zoster
     Dosage: UNK MG
  2. LOXOPROFEN [Suspect]
     Active Substance: LOXOPROFEN
     Dosage: UNK

REACTIONS (10)
  - Toxic encephalopathy [Unknown]
  - Neurogenic bladder [Unknown]
  - Postrenal failure [Unknown]
  - Acute kidney injury [Unknown]
  - Renal tubular necrosis [Unknown]
  - Spinal compression fracture [Unknown]
  - Spinal compression fracture [Unknown]
  - Asthenia [Unknown]
  - Decreased appetite [Unknown]
  - Fall [Unknown]
